FAERS Safety Report 19396156 (Version 3)
Quarter: 2024Q2

REPORT INFORMATION
  Report Type: Report from Study
  Country: IT (occurrence: IT)
  Receive Date: 20210610
  Receipt Date: 20240408
  Transmission Date: 20240716
  Serious: Yes (Other)
  Sender: FDA-Public Use
  Company Number: IT-CELLTRION INC.-2021IT007414

PATIENT

DRUGS (13)
  1. INFLIXIMAB [Suspect]
     Active Substance: INFLIXIMAB
     Indication: Chronic granulomatous disease
     Dosage: 150 MG, 1 DAY (CUMULATIVE DOSE TO FIRST REACTION: 2100 MG)
     Route: 042
     Dates: start: 20210218, end: 20210304
  2. METRONIDAZOLE [Suspect]
     Active Substance: METRONIDAZOLE
     Indication: Chronic granulomatous disease
     Dosage: 525 MG, 1 DAY (CUMULATIVE DOSE TO FIRST REACTION: 6300 MG)
     Route: 042
     Dates: start: 20210218, end: 20210301
  3. ITRACONAZOLE [Suspect]
     Active Substance: ITRACONAZOLE
     Indication: Prophylaxis
     Dosage: 100 MG, 1 DAY (CUMULATIVE DOSE TO FIRST REACTION: 1400 MG)
     Route: 048
     Dates: start: 20210218, end: 20210304
  4. METHYLPREDNISOLONE [Suspect]
     Active Substance: METHYLPREDNISOLONE
     Indication: Chronic granulomatous disease
     Dosage: 35 MG, 1 DAY (CUMULATIVE DOSE TO FIRST REACTION: 70 MG)
     Route: 042
     Dates: start: 20210301, end: 20210302
  5. BACTRIM [Suspect]
     Active Substance: SULFAMETHOXAZOLE\TRIMETHOPRIM
     Indication: Prophylaxis
     Dosage: 7 ML, 1 DAY (CUMULATIVE DOSE TO FIRST REACTION: 98 ML)
     Route: 058
     Dates: start: 20210218, end: 20210304
  6. AZATHIOPRINE [Concomitant]
     Active Substance: AZATHIOPRINE
     Indication: Chronic granulomatous disease
     Dosage: 50 MG, 1 DAY (CUMULATIVE DOSE TO FIRST REACTION: 21100 MG)
     Dates: start: 20200101, end: 20210225
  7. MESALAMINE [Concomitant]
     Active Substance: MESALAMINE
     Indication: Chronic granulomatous disease
     Dosage: 1600 MG, 1 DAY
     Route: 048
  8. CHOLECALCIFEROL [Concomitant]
     Active Substance: CHOLECALCIFEROL
     Indication: Vitamin D deficiency
     Dosage: 3 [DRP], 1 DAY
     Route: 048
  9. UNASYN [Concomitant]
     Active Substance: AMPICILLIN SODIUM\SULBACTAM SODIUM
     Dosage: 3.6 G, 1 DAY
  10. LEVOTHYROXINE SODIUM [Concomitant]
     Active Substance: LEVOTHYROXINE SODIUM
     Indication: Williams syndrome
     Dosage: 25 UG, 1 DAY
     Route: 048
  11. PREDNISONE [Concomitant]
     Active Substance: PREDNISONE
     Indication: Chronic granulomatous disease
     Dosage: 35 MG, 1 DAY
     Dates: start: 20210303
  12. OXATOMIDE [Concomitant]
     Active Substance: OXATOMIDE
     Dosage: 12 [DRP], 1 DAY
  13. SIMETHICONE (DIMETHICONE) [Concomitant]
     Active Substance: DIMETHICONE
     Indication: Abdominal pain
     Dosage: 60 [DRP], 1 DAY (CUMULATIVE DOSE TO FIRST REACTION: 120 [DRP])
     Route: 048
     Dates: start: 20210302

REACTIONS (4)
  - Drug interaction [Not Recovered/Not Resolved]
  - Sinus tachycardia [Not Recovered/Not Resolved]
  - Hypertension [Not Recovered/Not Resolved]
  - Intentional product use issue [Unknown]

NARRATIVE: CASE EVENT DATE: 20210303
